FAERS Safety Report 5280603-5 (Version None)
Quarter: 2007Q1

REPORT INFORMATION
  Report Type: 
  Country: None (occurrence: None)
  Receive Date: 20061215
  Receipt Date: 20060403
  Transmission Date: 20070707
  Serious: Yes (Hospitalization, Other)
  Sender: FDA-Public Use
  Company Number: HQWYE624904APR06

PATIENT
  Age: 18 Year
  Sex: Female
  Weight: 60.38 kg

DRUGS (7)
  1. EFFEXOR XR [Suspect]
     Indication: DEPRESSION
     Dosage: SEE IMAGE
     Route: 048
     Dates: start: 20030701, end: 20051101
  2. EFFEXOR XR [Suspect]
     Indication: DEPRESSION
     Dosage: SEE IMAGE
     Route: 048
     Dates: start: 20051101, end: 20060101
  3. EFFEXOR XR [Suspect]
     Indication: DEPRESSION
     Dosage: SEE IMAGE
     Route: 048
     Dates: start: 20060101, end: 20060101
  4. LITHIUM CARBONATE [Concomitant]
  5. BUSPAR [Concomitant]
  6. SYNTHROID [Concomitant]
  7. REMERON [Concomitant]

REACTIONS (7)
  - DRUG EFFECT DECREASED [None]
  - HYPERTENSION [None]
  - LYMPHADENOPATHY [None]
  - OEDEMA PERIPHERAL [None]
  - RASH [None]
  - SWELLING FACE [None]
  - WEIGHT INCREASED [None]
